FAERS Safety Report 10600412 (Version 1)
Quarter: 2014Q4

REPORT INFORMATION
  Report Type: Spontaneous
  Country: GB (occurrence: GB)
  Receive Date: 20141124
  Receipt Date: 20141124
  Transmission Date: 20150529
  Serious: Yes (Death, Other)
  Sender: FDA-Public Use
  Company Number: GB-CIPLA LTD.-2014GB02057

PATIENT

DRUGS (2)
  1. IDALOPIRDINE [Suspect]
     Active Substance: IDALOPIRDINE
     Indication: DEMENTIA ALZHEIMER^S TYPE
     Dosage: 90 MG, UNK
  2. DONEPEZIL [Suspect]
     Active Substance: DONEPEZIL
     Indication: DEMENTIA ALZHEIMER^S TYPE
     Dosage: 10 MG, UNK

REACTIONS (2)
  - Bronchopneumonia [Fatal]
  - Brain injury [Unknown]
